FAERS Safety Report 11330100 (Version 2)
Quarter: 2015Q3

REPORT INFORMATION
  Report Type: Report from Study
  Country: PT (occurrence: PT)
  Receive Date: 20150803
  Receipt Date: 20150813
  Transmission Date: 20151125
  Serious: Yes (Congenital Anomaly)
  Sender: FDA-Public Use
  Company Number: PT-BIOGENIDEC-2015BI105515

PATIENT
  Age: 0 Day
  Sex: Male
  Weight: 3 kg

DRUGS (4)
  1. AVONEX [Suspect]
     Active Substance: INTERFERON BETA-1A
     Indication: MATERNAL EXPOSURE TIMING UNSPECIFIED
     Route: 064
     Dates: start: 201301, end: 20140930
  2. IODINE [Concomitant]
     Active Substance: IODINE
  3. FOLIC ACID. [Concomitant]
     Active Substance: FOLIC ACID
  4. IRON [Concomitant]
     Active Substance: IRON

REACTIONS (2)
  - Foetal exposure during pregnancy [Recovered/Resolved]
  - Cryptorchism [Not Recovered/Not Resolved]

NARRATIVE: CASE EVENT DATE: 20150701
